FAERS Safety Report 5382189-3 (Version None)
Quarter: 2007Q3

REPORT INFORMATION
  Report Type: 
  Country: None (occurrence: None)
  Receive Date: 20070709
  Receipt Date: 20070626
  Transmission Date: 20080115
  Serious: Yes (Hospitalization)
  Sender: FDA-Public Use
  Company Number: US-ELI_LILLY_AND_COMPANY-US200706005819

PATIENT
  Age: 57 Year
  Sex: Male

DRUGS (17)
  1. CYMBALTA [Suspect]
     Indication: POST-TRAUMATIC STRESS DISORDER
     Dosage: 20 MG, 2/D
     Route: 048
     Dates: start: 20050601
  2. ALBUTEROL SULFATE W/IPRATROPIUM BROMIDE [Concomitant]
     Route: 055
  3. ASCORBIC ACID [Concomitant]
  4. NICOTINE [Concomitant]
     Route: 062
  5. HEPARIN [Concomitant]
     Route: 058
  6. ZOSYN [Concomitant]
     Route: 042
  7. THIAMINE [Concomitant]
  8. VANCOMYCIN [Concomitant]
     Route: 042
  9. SODIUM CHLORIDE [Concomitant]
     Route: 042
  10. ZINC SULFATE [Concomitant]
  11. TYLENOL                                 /SCH/ [Concomitant]
     Dosage: UNK, AS NEEDED
  12. DOCUSATE [Concomitant]
     Dosage: UNK, AS NEEDED
  13. IBUPROFEN [Concomitant]
     Dosage: UNK, AS NEEDED
  14. REGULAR INSULIN [Concomitant]
     Dosage: UNK D/F, AS NEEDED
  15. LANSOPRAZOLE [Concomitant]
     Dosage: UNK, AS NEEDED
  16. SILVADENE [Concomitant]
     Dosage: UNK, AS NEEDED
     Route: 061
  17. FOLIC ACID [Concomitant]

REACTIONS (1)
  - THERMAL BURN [None]
